FAERS Safety Report 7294695-5 (Version None)
Quarter: 2011Q1

REPORT INFORMATION
  Report Type: 
  Country: None (occurrence: None)
  Receive Date: 20110207
  Receipt Date: 20110125
  Transmission Date: 20110831
  Serious: Yes (Death, Hospitalization)
  Sender: FDA-Public Use
  Company Number: KADN20110013

PATIENT
  Age: 55 Year
  Sex: Female

DRUGS (19)
  1. TRICOR [Concomitant]
  2. CAFFEINE [Concomitant]
  3. MORPHINE [Suspect]
     Indication: PRODUCT USED FOR UNKNOWN INDICATION
     Dosage: PER ORAL
     Route: 048
     Dates: end: 20090101
  4. LORAZEPAM [Suspect]
     Indication: PRODUCT USED FOR UNKNOWN INDICATION
     Dosage: PER ORAL
     Route: 048
     Dates: end: 20090101
  5. CYMBALTA [Concomitant]
  6. FLEXERIL [Suspect]
     Indication: PRODUCT USED FOR UNKNOWN INDICATION
     Dosage: PER ORAL
     Route: 048
     Dates: end: 20090101
  7. LISINOPRIL [Concomitant]
  8. NEXIUM [Concomitant]
  9. DIPHENHYDRAMINE [Concomitant]
  10. ATENOLOL [Concomitant]
  11. PSEUDOEPHEDRINE HCL [Suspect]
     Indication: PRODUCT USED FOR UNKNOWN INDICATION
     Dosage: PER ORAL
     Route: 048
     Dates: end: 20090101
  12. INDOMETHIACIN [Concomitant]
  13. SYNTHROID [Concomitant]
  14. POTASSIUM [Concomitant]
  15. COUMADIN [Concomitant]
  16. NICOTINE [Concomitant]
  17. COCAINE [Suspect]
     Indication: PRODUCT USED FOR UNKNOWN INDICATION
     Dosage: PER ORAL
     Route: 048
     Dates: end: 20090101
  18. LYRICA [Concomitant]
  19. TRAZODONE HCL [Concomitant]

REACTIONS (15)
  - ASPARTATE AMINOTRANSFERASE INCREASED [None]
  - HYPOTENSION [None]
  - BLOOD CREATINE PHOSPHOKINASE INCREASED [None]
  - DRUG ABUSE [None]
  - UNRESPONSIVE TO STIMULI [None]
  - PNEUMONIA ASPIRATION [None]
  - BLOOD CREATININE INCREASED [None]
  - ACIDOSIS [None]
  - BLOOD LACTIC ACID INCREASED [None]
  - BLOOD GLUCOSE DECREASED [None]
  - BLOOD POTASSIUM INCREASED [None]
  - PARALYSIS FLACCID [None]
  - ALANINE AMINOTRANSFERASE INCREASED [None]
  - TOXICITY TO VARIOUS AGENTS [None]
  - COMPLETED SUICIDE [None]
